FAERS Safety Report 17771095 (Version 1)
Quarter: 2020Q2

REPORT INFORMATION
  Report Type: Spontaneous
  Country: US (occurrence: US)
  Receive Date: 20200512
  Receipt Date: 20200512
  Transmission Date: 20200714
  Serious: Yes (Life-Threatening)
  Sender: FDA-Public Use
  Company Number: None

PATIENT
  Age: 71 Year
  Sex: Male
  Weight: 74.25 kg

DRUGS (2)
  1. DAILY VITAMINS [Concomitant]
     Active Substance: VITAMINS
  2. LOSARTAN POTASSIUM 50 MG TAB [Suspect]
     Active Substance: LOSARTAN POTASSIUM
     Indication: HYPERTENSION
     Dosage: ?          QUANTITY:1.5 TABLET(S);?
     Route: 048
     Dates: start: 20200415, end: 20200512

REACTIONS (5)
  - Therapeutic product effect decreased [None]
  - Blood pressure increased [None]
  - Product dispensing issue [None]
  - Therapeutic response changed [None]
  - Product substitution issue [None]

NARRATIVE: CASE EVENT DATE: 20200415
